FAERS Safety Report 4487905-0 (Version None)
Quarter: 2004Q4

REPORT INFORMATION
  Report Type: 
  Country: None (occurrence: None)
  Receive Date: 20041026
  Receipt Date: 20041008
  Transmission Date: 20050328
  Serious: Yes (Death, Hospitalization, Other)
  Sender: FDA-Public Use
  Company Number: US_0410106912

PATIENT
  Sex: Male

DRUGS (7)
  1. ALIMTA [Suspect]
     Indication: MESOTHELIOMA MALIGNANT
     Dosage: 500 MG/M2 OTHER
  2. GEMZAR [Suspect]
     Indication: MESOTHELIOMA MALIGNANT
     Dosage: 1250 MG/M2 OTHER
     Route: 042
  3. FOLIC ACID [Concomitant]
  4. VITAMIN B-12 [Concomitant]
  5. ANTIBIOTICS [Concomitant]
  6. NEUPOGEN [Concomitant]
  7. PRESSORS [Concomitant]

REACTIONS (5)
  - CARDIO-RESPIRATORY ARREST [None]
  - FEBRILE NEUTROPENIA [None]
  - PANCYTOPENIA [None]
  - PNEUMONIA ASPIRATION [None]
  - RENAL FAILURE ACUTE [None]
